FAERS Safety Report 26041472 (Version 1)
Quarter: 2025Q4

REPORT INFORMATION
  Report Type: Spontaneous
  Country: GB (occurrence: GB)
  Receive Date: 20251113
  Receipt Date: 20251113
  Transmission Date: 20260118
  Serious: Yes (Death, Hospitalization, Other)
  Sender: Kenvue
  Company Number: GB-KENVUE-20251103049

PATIENT

DRUGS (1)
  1. ACETAMINOPHEN [Suspect]
     Active Substance: ACETAMINOPHEN
     Indication: Product used for unknown indication
     Route: 065

REACTIONS (13)
  - Disseminated intravascular coagulation [Fatal]
  - Haemophagocytic lymphohistiocytosis [Fatal]
  - Vasoplegia syndrome [Fatal]
  - Cardiac failure [Fatal]
  - Metabolic disorder [Fatal]
  - Acute hepatic failure [Fatal]
  - Hyperlactacidaemia [Fatal]
  - Bacterial sepsis [Fatal]
  - Respiratory failure [Fatal]
  - Overdose [Fatal]
  - Pneumonia [Fatal]
  - Thrombosis mesenteric vessel [Fatal]
  - Pancreatitis [Fatal]
